FAERS Safety Report 6163477-X (Version None)
Quarter: 2009Q2

REPORT INFORMATION
  Report Type: 
  Country: None (occurrence: None)
  Receive Date: 20090422
  Receipt Date: 20090414
  Transmission Date: 20091009
  Serious: Yes (Hospitalization, Other)
  Sender: FDA-Public Use
  Company Number: FR-JNJFOC-20090107070

PATIENT
  Age: 51 Year
  Sex: Female
  Weight: 62 kg

DRUGS (7)
  1. REMICADE [Suspect]
     Dosage: 8TH INFUSION
     Route: 042
  2. REMICADE [Suspect]
     Indication: RHEUMATOID ARTHRITIS
     Dosage: 8 INFUSIONS
     Route: 042
  3. CORTANCYL [Concomitant]
  4. NOVATREX [Concomitant]
  5. ACTONEL [Concomitant]
  6. DOLIPRANE [Concomitant]
  7. SPECIA FOLDINE [Concomitant]

REACTIONS (1)
  - DISSEMINATED TUBERCULOSIS [None]
